FAERS Safety Report 17161646 (Version 2)
Quarter: 2020Q1

REPORT INFORMATION
  Report Type: Spontaneous
  Country: DE (occurrence: DE)
  Receive Date: 20191217
  Receipt Date: 20200116
  Transmission Date: 20200409
  Serious: Yes (Death)
  Sender: FDA-Public Use
  Company Number: DE-MALLINCKRODT-T201908831

PATIENT
  Age: 48 Year
  Sex: Male

DRUGS (7)
  1. LEVOMETHADONE [Suspect]
     Active Substance: LEVOMETHADONE
     Dosage: UNK (3 X 2 ML )
     Route: 065
  2. METAMIZOLE [Suspect]
     Active Substance: METAMIZOLE
     Indication: PRODUCT USED FOR UNKNOWN INDICATION
     Dosage: 4 DOSAGE FORM, QD
     Route: 065
  3. LORAZEPAM. [Suspect]
     Active Substance: LORAZEPAM
     Indication: PAIN
     Dosage: UNK
     Route: 065
  4. PREGABALIN. [Suspect]
     Active Substance: PREGABALIN
     Indication: PAIN
     Dosage: 300 MILLIGRAM, QD
     Route: 065
  5. LEVOMETHADONE [Suspect]
     Active Substance: LEVOMETHADONE
     Indication: PRODUCT USED FOR UNKNOWN INDICATION
     Dosage: UNK (4 X 5ML )
     Route: 065
  6. EXALGO [Suspect]
     Active Substance: HYDROMORPHONE HYDROCHLORIDE
     Indication: PRODUCT USED FOR UNKNOWN INDICATION
     Dosage: 48 MILLIGRAM, QD
     Route: 065
  7. MIRTAZAPINE. [Suspect]
     Active Substance: MIRTAZAPINE
     Indication: PAIN
     Dosage: UNK
     Route: 065

REACTIONS (5)
  - Insomnia [Unknown]
  - Drug ineffective [Unknown]
  - Panic attack [Unknown]
  - Anxiety [Unknown]
  - Death [Fatal]
